FAERS Safety Report 4852772-X (Version None)
Quarter: 2005Q4

REPORT INFORMATION
  Report Type: 
  Country: None (occurrence: None)
  Receive Date: 20051125
  Receipt Date: 20050603
  Transmission Date: 20060501
  Serious: Yes (Hospitalization)
  Sender: FDA-Public Use
  Company Number: 2005BH000602

PATIENT
  Age: 51 Year
  Sex: Male

DRUGS (19)
  1. DIANEAL [Suspect]
     Indication: RENAL FAILURE CHRONIC
     Dosage: 6 L; IP
     Route: 033
     Dates: start: 20040322
  2. ESOMEPRAZOLE [Concomitant]
  3. EPOGEN [Concomitant]
  4. DAPSONE [Concomitant]
  5. NEURONTIN [Concomitant]
  6. CELEBREX [Concomitant]
  7. PRAVACHOL [Concomitant]
  8. ALTACE [Concomitant]
  9. RENAGEL [Concomitant]
  10. NELFINAVIR [Concomitant]
  11. MULTIVITAMIN [Concomitant]
  12. NITROGLYCERIN [Concomitant]
  13. AMBIEN [Concomitant]
  14. ROCALTROL [Concomitant]
  15. HYDROXYZINE HYDROCHLORIDE [Concomitant]
  16. LOPERAMIDE [Concomitant]
  17. TOPROL-XL [Concomitant]
  18. ZERIT [Concomitant]
  19. EPIVIR [Concomitant]

REACTIONS (2)
  - PERITONITIS BACTERIAL [None]
  - STAPHYLOCOCCAL INFECTION [None]
